FAERS Safety Report 6323169-0 (Version None)
Quarter: 2009Q3

REPORT INFORMATION
  Report Type: 
  Country: None (occurrence: None)
  Receive Date: 20090824
  Receipt Date: 20090304
  Transmission Date: 20100115
  Serious: No
  Sender: FDA-Public Use
  Company Number: US-ABBOTT-09P-163-0563456-00

PATIENT
  Sex: Male

DRUGS (9)
  1. NIASPAN [Suspect]
     Indication: HIGH DENSITY LIPOPROTEIN DECREASED
     Route: 048
     Dates: start: 20080901, end: 20090101
  2. NIASPAN [Suspect]
     Indication: LOW DENSITY LIPOPROTEIN INCREASED
  3. NIASPAN [Suspect]
     Indication: HIGH DENSITY LIPOPROTEIN DECREASED
     Dosage: AT BEDTIME
     Dates: start: 20090101
  4. NIASPAN [Suspect]
     Indication: LOW DENSITY LIPOPROTEIN INCREASED
  5. FISH OIL [Concomitant]
     Indication: DRUG USE FOR UNKNOWN INDICATION
  6. MULTI-VITAMIN [Concomitant]
     Indication: DRUG USE FOR UNKNOWN INDICATION
  7. PLAVIX [Concomitant]
     Indication: DRUG USE FOR UNKNOWN INDICATION
  8. LISINOPRIL [Concomitant]
     Indication: DRUG USE FOR UNKNOWN INDICATION
  9. ASPIRIN [Concomitant]
     Indication: DRUG USE FOR UNKNOWN INDICATION

REACTIONS (1)
  - FLUSHING [None]
